FAERS Safety Report 9959975 (Version 1)
Quarter: 2014Q1

REPORT INFORMATION
  Report Type: Spontaneous
  Country: GB (occurrence: None)
  Receive Date: 20140227
  Receipt Date: 20140227
  Transmission Date: 20141002
  Serious: Yes (Other)
  Sender: FDA-Public Use
  Company Number: AUR-APL-2014-01869

PATIENT
  Sex: Male

DRUGS (4)
  1. SERTRALINE (SERTRALINE) [Suspect]
     Indication: PRODUCT USED FOR UNKNOWN INDICATION
  2. ZISPIN [Suspect]
     Indication: PRODUCT USED FOR UNKNOWN INDICATION
     Route: 048
     Dates: end: 20140130
  3. LITHIUM (LITHIUM) [Concomitant]
  4. OLANZAPINE (OLANZAPINE) [Concomitant]

REACTIONS (4)
  - Gastrointestinal disorder [None]
  - Gastrectomy [None]
  - Dysphagia [None]
  - Gastrointestinal haemorrhage [None]
